FAERS Safety Report 24642724 (Version 1)
Quarter: 2024Q4

REPORT INFORMATION
  Report Type: Spontaneous
  Country: CN (occurrence: CN)
  Receive Date: 20241120
  Receipt Date: 20241120
  Transmission Date: 20250115
  Serious: Yes (Other)
  Sender: ELI LILLY AND COMPANY
  Company Number: CN-ELI_LILLY_AND_COMPANY-CN202411006420

PATIENT
  Sex: Female

DRUGS (2)
  1. HUMALOG MIX50/50 [Suspect]
     Active Substance: INSULIN LISPRO
     Indication: Diabetes mellitus
     Dosage: 23 INTERNATIONAL UNIT, DAILY (7 IN THE MORNING, 8 AT NOON, 8 IN THE EVENING, THREE TIMES A DAY)
     Route: 058
     Dates: start: 2013
  2. HUMALOG MIX50/50 [Suspect]
     Active Substance: INSULIN LISPRO
     Dosage: 23 INTERNATIONAL UNIT, DAILY (7 IN THE MORNING, 8 AT NOON, 8 IN THE EVENING, THREE TIMES A DAY)
     Route: 058

REACTIONS (3)
  - Blindness unilateral [Unknown]
  - Retinal detachment [Unknown]
  - Tremor [Unknown]

NARRATIVE: CASE EVENT DATE: 20190101
